FAERS Safety Report 9720139 (Version 1)
Quarter: 2013Q4

REPORT INFORMATION
  Report Type: Report from Study
  Country: US (occurrence: US)
  Receive Date: 20131129
  Receipt Date: 20131129
  Transmission Date: 20140711
  Serious: Yes (Death)
  Sender: FDA-Public Use
  Company Number: US-ROCHE-1308175

PATIENT
  Age: 72 Year
  Sex: Male

DRUGS (1)
  1. CELLCEPT [Suspect]
     Indication: MYASTHENIA GRAVIS
     Dosage: EVERY AM AND EVERY PM
     Route: 048

REACTIONS (1)
  - Death [Fatal]
